FAERS Safety Report 15252408 (Version 1)
Quarter: 2018Q3

REPORT INFORMATION
  Report Type: Spontaneous
  Country: US (occurrence: US)
  Receive Date: 20180717
  Receipt Date: 20180717
  Transmission Date: 20181010
  Serious: Yes (Other)
  Sender: FDA-Public Use
  Company Number: None

PATIENT
  Age: 60 Year
  Sex: Female
  Weight: 68.85 kg

DRUGS (14)
  1. MAGNESIUM [Concomitant]
     Active Substance: MAGNESIUM
  2. MULTIVITAMINS [Concomitant]
     Active Substance: VITAMINS
  3. LIPITOR [Concomitant]
     Active Substance: ATORVASTATIN CALCIUM
  4. ISRADIPINE. [Suspect]
     Active Substance: ISRADIPINE
     Indication: PARKINSON^S DISEASE
     Dosage: ?          QUANTITY:1 CAPSULE(S);?
     Route: 048
     Dates: start: 20180709, end: 20180714
  5. CELEXA [Concomitant]
     Active Substance: CITALOPRAM HYDROBROMIDE
  6. PREVACID [Concomitant]
     Active Substance: LANSOPRAZOLE
  7. ALEVE [Concomitant]
     Active Substance: NAPROXEN SODIUM
  8. SELENIUM [Concomitant]
     Active Substance: SELENIUM
  9. LOW DOSE NALTREXONE [Concomitant]
     Active Substance: NALTREXONE
  10. N ACETYL CYSTEINE [Concomitant]
     Active Substance: ACETYLCYSTEINE
  11. FLAXSEED [Concomitant]
     Active Substance: FLAX SEED
  12. HORMONE REPLACEMENT MEDS [Concomitant]
  13. COENZYME Q10 [Concomitant]
     Active Substance: UBIDECARENONE
  14. OMEGA 3 FISH OIL [Concomitant]
     Active Substance: FISH OIL\OMEGA-3 FATTY ACIDS

REACTIONS (4)
  - Drug ineffective for unapproved indication [None]
  - Headache [None]
  - Impaired work ability [None]
  - Lethargy [None]

NARRATIVE: CASE EVENT DATE: 20180713
